FAERS Safety Report 11990413 (Version 1)
Quarter: 2016Q1

REPORT INFORMATION
  Report Type: Spontaneous
  Country: US (occurrence: US)
  Receive Date: 20160202
  Receipt Date: 20160202
  Transmission Date: 20160526
  Serious: No
  Sender: FDA-Public Use
  Company Number: US-009507513-1601USA009352

PATIENT
  Age: 72 Year
  Sex: Female

DRUGS (2)
  1. DULERA [Suspect]
     Active Substance: FORMOTEROL FUMARATE DIHYDRATE\MOMETASONE FUROATE
     Dosage: CUTTING BACK ON THE DOSES AND NOT USING IT EVERY DAY AS DIRECTED (FREQUENCY UNKNOWN).
     Dates: start: 2015
  2. DULERA [Suspect]
     Active Substance: FORMOTEROL FUMARATE DIHYDRATE\MOMETASONE FUROATE
     Indication: ASTHMA
     Dosage: 2 INHALATIONS/TWICE A DAY
     Route: 055
     Dates: start: 201410

REACTIONS (5)
  - Sarcoidosis [Recovering/Resolving]
  - Inappropriate schedule of drug administration [Unknown]
  - Cough [Recovering/Resolving]
  - Incorrect dose administered [Unknown]
  - Product quality issue [Unknown]

NARRATIVE: CASE EVENT DATE: 2015
